FAERS Safety Report 23521891 (Version 1)
Quarter: 2024Q1

REPORT INFORMATION
  Report Type: Spontaneous
  Country: US (occurrence: US)
  Receive Date: 20240214
  Receipt Date: 20240214
  Transmission Date: 20240410
  Serious: No
  Sender: FDA-Public Use
  Company Number: US-P+L Developments of Newyork Corporation-2153177

PATIENT
  Sex: Female

DRUGS (1)
  1. CLOTRIMAZOLE CREAM 1% [Suspect]
     Active Substance: CLOTRIMAZOLE
     Route: 065

REACTIONS (4)
  - Vulvovaginal burning sensation [Unknown]
  - Drug ineffective [Unknown]
  - Product use issue [Unknown]
  - Vulvovaginal pruritus [Unknown]
